FAERS Safety Report 14243348 (Version 4)
Quarter: 2018Q4

REPORT INFORMATION
  Report Type: Spontaneous
  Country: JP (occurrence: JP)
  Receive Date: 20171201
  Receipt Date: 20181217
  Transmission Date: 20190204
  Serious: Yes (Death)
  Sender: FDA-Public Use
  Company Number: JP-ACTELION-A-CH2017-163364

PATIENT
  Age: 77 Year
  Sex: Female
  Weight: 48.5 kg

DRUGS (13)
  1. NEOPHAGEN C [Concomitant]
     Indication: HEPATIC CONGESTION
     Dosage: 1 DF, QD
     Dates: start: 20171115, end: 20171120
  2. AKINETON [Concomitant]
     Active Substance: BIPERIDEN HYDROCHLORIDE
     Dosage: 3 MG, QD
     Dates: end: 20171120
  3. TRACLEER [Concomitant]
     Active Substance: BOSENTAN
     Indication: PULMONARY HYPERTENSION
     Dosage: 125 MG, QD
     Route: 048
     Dates: end: 20171120
  4. TRYPTANOL [Concomitant]
     Active Substance: AMITRIPTYLINE
     Dosage: 150 MG, QD
     Dates: end: 20171120
  5. URSO [Concomitant]
     Active Substance: URSODIOL
     Indication: HEPATIC CONGESTION
     Dosage: 100 MG, QD
     Dates: start: 20171115, end: 20171120
  6. UPTRAVI [Suspect]
     Active Substance: SELEXIPAG
     Indication: PULMONARY HYPERTENSION
     Dosage: 0.2 MG, BID
     Route: 048
     Dates: start: 20171115, end: 20171120
  7. FEBURIC [Concomitant]
     Active Substance: FEBUXOSTAT
     Dosage: 10 MG, QD
     Dates: end: 20171120
  8. RISPERIDONE. [Concomitant]
     Active Substance: RISPERIDONE
     Dosage: 1 MG, QD
     Dates: end: 20171120
  9. DIAMOX SEQUELS [Concomitant]
     Active Substance: ACETAZOLAMIDE
     Dosage: 250 MG, QD
     Dates: end: 20171120
  10. FUROSEMIDE. [Concomitant]
     Active Substance: FUROSEMIDE
     Dosage: 30 MG, QD
     Dates: end: 20171120
  11. EBRANTIL [Concomitant]
     Active Substance: URAPIDIL
     Dosage: 15 MG, QD
     Dates: end: 20171120
  12. MAGMITT [Concomitant]
     Active Substance: MAGNESIUM OXIDE
     Dosage: 330 MG, BID
     Dates: end: 20171120
  13. PIMOBENDAN [Concomitant]
     Active Substance: PIMOBENDAN
     Dosage: 2.5 MG, QD
     Dates: end: 20171120

REACTIONS (3)
  - Condition aggravated [Fatal]
  - Cardiac failure [Fatal]
  - Pulmonary hypertension [Fatal]

NARRATIVE: CASE EVENT DATE: 20171120
